FAERS Safety Report 8431157-3 (Version None)
Quarter: 2012Q2

REPORT INFORMATION
  Report Type: 
  Country: None (occurrence: None)
  Receive Date: 20120612
  Receipt Date: 20120601
  Transmission Date: 20120825
  Serious: Yes (Other)
  Sender: FDA-Public Use
  Company Number: CHPA2012US010529

PATIENT
  Age: 37 Year
  Sex: Female

DRUGS (6)
  1. TRANSDERM SCOP [Suspect]
     Indication: MOTION SICKNESS
     Dosage: UNK, UNK
     Route: 062
     Dates: start: 20100101
  2. TRANSDERM SCOP [Suspect]
     Dosage: 1 DF, Q72H
     Route: 062
     Dates: start: 20120501, end: 20120501
  3. PAXIL [Concomitant]
     Indication: ANXIETY
     Dosage: UNK, UNK
  4. VITAMIN D [Concomitant]
     Dosage: UNK, UNK
  5. TRANSDERM SCOP [Suspect]
     Dosage: 1 DF, ONCE/SINGLE
     Route: 062
     Dates: start: 20120312, end: 20120313
  6. SYNTHROID [Concomitant]
     Indication: HYPOTHYROIDISM
     Dosage: UNK, UNK

REACTIONS (7)
  - OVARIAN CANCER [None]
  - VISUAL IMPAIRMENT [None]
  - VISION BLURRED [None]
  - PHOTOPHOBIA [None]
  - DRUG ADMINISTERED AT INAPPROPRIATE SITE [None]
  - DIPLOPIA [None]
  - MYDRIASIS [None]
